FAERS Safety Report 10211529 (Version 1)
Quarter: 2014Q2

REPORT INFORMATION
  Report Type: Report from Study
  Country: US (occurrence: US)
  Receive Date: 20140602
  Receipt Date: 20140602
  Transmission Date: 20141212
  Serious: Yes (Other)
  Sender: FDA-Public Use
  Company Number: US-IPSEN BIOPHARMACEUTICALS, INC.-2014-2638

PATIENT
  Sex: Male

DRUGS (7)
  1. INCRELEX [Suspect]
     Indication: PRIMARY INSULIN LIKE GROWTH FACTOR-1 DEFICIENCY
     Dosage: 200 MCG/KG
     Route: 058
     Dates: start: 20101130, end: 201108
  2. INCRELEX [Suspect]
     Dosage: 80 MCG/KG
     Route: 058
     Dates: start: 20070906
  3. INCRELEX [Suspect]
     Dosage: 240 MCG/KG
     Route: 058
  4. INCRELEX [Suspect]
     Dosage: 182 MCG/KG
     Route: 058
     Dates: start: 20090601
  5. INCRELEX [Suspect]
     Dosage: 198 MCG/KG
     Route: 058
     Dates: start: 20100122
  6. ENALAPRIL [Concomitant]
     Indication: PRODUCT USED FOR UNKNOWN INDICATION
     Route: 065
  7. ASPIRIN [Concomitant]
     Indication: PRODUCT USED FOR UNKNOWN INDICATION
     Route: 065

REACTIONS (2)
  - Cardiac operation [Unknown]
  - Drug dose omission [Unknown]
